FAERS Safety Report 19452378 (Version 1)
Quarter: 2021Q2

REPORT INFORMATION
  Report Type: Spontaneous
  Country: US (occurrence: US)
  Receive Date: 20210623
  Receipt Date: 20210623
  Transmission Date: 20210717
  Serious: No
  Sender: FDA-Public Use
  Company Number: US-BAYER-2021-162780

PATIENT
  Age: 26 Year
  Sex: Female

DRUGS (2)
  1. CLARITIN [Suspect]
     Active Substance: LORATADINE
     Indication: RASH MACULAR
  2. CLARITIN [Suspect]
     Active Substance: LORATADINE
     Indication: ILLNESS
     Dosage: 1 DF, QD AFTER DINNER
     Route: 048
     Dates: start: 20210621, end: 20210621

REACTIONS (3)
  - Myalgia [Not Recovered/Not Resolved]
  - Product use in unapproved indication [None]
  - Neuralgia [Not Recovered/Not Resolved]

NARRATIVE: CASE EVENT DATE: 20210621
